FAERS Safety Report 12136738 (Version 1)
Quarter: 2016Q1

REPORT INFORMATION
  Report Type: Spontaneous
  Country: US (occurrence: None)
  Receive Date: 20160301
  Receipt Date: 20160301
  Transmission Date: 20160526
  Serious: No
  Sender: FDA-Public Use
  Company Number: None

PATIENT
  Age: 44 Year
  Sex: Female
  Weight: 66.23 kg

DRUGS (12)
  1. CLEAVERS [Concomitant]
  2. CEPHALEXIN 500 MG LUPIN PHARMACEUTICAL [Suspect]
     Active Substance: CEPHALEXIN
     Indication: URINARY TRACT INFECTION
     Route: 048
     Dates: start: 20160222, end: 20160226
  3. SACCHAROMYCES [Concomitant]
     Active Substance: SACCHAROMYCES CEREVISIAE
  4. MARSHMALLOW [Concomitant]
     Active Substance: ALCOHOL
  5. CORNSILK [Concomitant]
  6. UVA URSI [Concomitant]
  7. BUCHU [Concomitant]
  8. D-MANNOSE [Concomitant]
  9. COUCHGRASS [Concomitant]
  10. HORSETAIL [Concomitant]
  11. VITAMIN B-COMPLEX [Concomitant]
     Active Substance: DEXPANTHENOL\NIACINAMIDE\PYRIDOXINE HYDROCHLORIDE\RIBOFLAVIN 5^-PHOSPHATE SODIUM\THIAMINE HYDROCHLORIDE
  12. ELECTROLYTES [Concomitant]
     Active Substance: ELECTROLYTES NOS

REACTIONS (9)
  - Decreased appetite [None]
  - Rash erythematous [None]
  - Nausea [None]
  - Rash pruritic [None]
  - Urticaria [None]
  - Lip blister [None]
  - Dyspnoea [None]
  - Heart rate increased [None]
  - Fatigue [None]

NARRATIVE: CASE EVENT DATE: 20160223
